FAERS Safety Report 11192090 (Version 1)
Quarter: 2015Q2

REPORT INFORMATION
  Report Type: Spontaneous
  Country: IT (occurrence: IT)
  Receive Date: 20150616
  Receipt Date: 20150616
  Transmission Date: 20150821
  Serious: Yes (Hospitalization)
  Sender: FDA-Public Use
  Company Number: IT-PFIZER INC-2015195985

PATIENT
  Age: 57 Year
  Sex: Male

DRUGS (4)
  1. METHYLPREDNISOLONE. [Concomitant]
     Active Substance: METHYLPREDNISOLONE
     Dosage: UNK
     Route: 048
  2. DALACIN C [Suspect]
     Active Substance: CLINDAMYCIN PHOSPHATE
     Indication: SCROTAL INFECTION
     Dosage: 600 MG, DAILY
     Route: 048
     Dates: start: 20150209, end: 20150424
  3. RIFADIN [Suspect]
     Active Substance: RIFAMPIN
     Indication: SCROTAL INFECTION
     Dosage: 600 MG, DAILY
     Route: 048
     Dates: start: 20150209, end: 20150424
  4. YOVIS [Concomitant]
     Dosage: 2 DF, UNK
     Route: 048

REACTIONS (2)
  - Gastroenteritis [Recovering/Resolving]
  - Hyponatraemia [Recovering/Resolving]

NARRATIVE: CASE EVENT DATE: 20150418
